FAERS Safety Report 23246120 (Version 10)
Quarter: 2024Q1

REPORT INFORMATION
  Report Type: Report from Study
  Country: CL (occurrence: CL)
  Receive Date: 20231130
  Receipt Date: 20240307
  Transmission Date: 20240410
  Serious: Yes (Other)
  Sender: FDA-Public Use
  Company Number: CL-JNJFOC-20231173001

PATIENT
  Age: 64 Year
  Sex: Female

DRUGS (7)
  1. SIMPONI [Suspect]
     Active Substance: GOLIMUMAB
     Indication: Psoriatic arthropathy
     Dosage: ADMINISTRATION INTERVAL: INITIAL; THERAPY START DATE ALSO REPORTED AS 15-NOV-2023?LAST DATE OF ADHE
     Route: 058
     Dates: start: 20231111
  2. FOLIC ACID [Concomitant]
     Active Substance: FOLIC ACID
  3. DULOXETINE [Concomitant]
     Active Substance: DULOXETINE
     Dosage: 30
     Route: 065
  4. LEVOTHYROXINE [Concomitant]
     Active Substance: LEVOTHYROXINE\LEVOTHYROXINE SODIUM
  5. CELECOXIB [Concomitant]
     Active Substance: CELECOXIB
  6. ESOMEPRAZOLE [Concomitant]
     Active Substance: ESOMEPRAZOLE
  7. CALCIUM CARBONATE\CHOLECALCIFEROL [Concomitant]
     Active Substance: CALCIUM CARBONATE\CHOLECALCIFEROL

REACTIONS (9)
  - Dyspnoea [Recovered/Resolved]
  - Tachycardia [Recovered/Resolved]
  - Chest discomfort [Recovering/Resolving]
  - Psoriatic arthropathy [Recovering/Resolving]
  - Blood pressure decreased [Recovered/Resolved]
  - Headache [Recovered/Resolved]
  - Erythema [Recovered/Resolved]
  - Drug ineffective [Unknown]
  - Fibromyalgia [Recovering/Resolving]

NARRATIVE: CASE EVENT DATE: 20231101
